FAERS Safety Report 13741884 (Version 4)
Quarter: 2017Q3

REPORT INFORMATION
  Report Type: Spontaneous
  Country: US (occurrence: US)
  Receive Date: 20170711
  Receipt Date: 20170929
  Transmission Date: 20171127
  Serious: Yes (Other)
  Sender: FDA-Public Use
  Company Number: US-PFIZER INC-2016457492

PATIENT
  Age: 65 Year
  Sex: Female

DRUGS (5)
  1. CELEBREX [Suspect]
     Active Substance: CELECOXIB
     Indication: OSTEOARTHRITIS
  2. CELEBREX [Suspect]
     Active Substance: CELECOXIB
     Indication: RENAL FAILURE
  3. CELEBREX [Suspect]
     Active Substance: CELECOXIB
     Indication: AMNESIA
     Dosage: 200 MG, 2X/DAY (TAKE ONE TABLET BY MOUTH TWICE DAILY)
     Route: 048
     Dates: start: 20160926, end: 20170701
  4. LYRICA [Concomitant]
     Active Substance: PREGABALIN
     Dosage: 50 MG, DAILY
     Route: 048
     Dates: start: 20170620
  5. CELEBREX [Suspect]
     Active Substance: CELECOXIB
     Indication: OSTEOARTHRITIS
     Dosage: 200 MG, 1X/DAY (QD)
     Route: 048
     Dates: end: 20170610

REACTIONS (3)
  - Renal failure [Unknown]
  - Product use issue [Unknown]
  - Blood creatinine increased [Recovering/Resolving]

NARRATIVE: CASE EVENT DATE: 20160926
